FAERS Safety Report 8962932 (Version 1)
Quarter: 2012Q4

REPORT INFORMATION
  Report Type: 
  Country: ES (occurrence: ES)
  Receive Date: 20121214
  Receipt Date: 20121214
  Transmission Date: 20130627
  Serious: Yes (Hospitalization)
  Sender: FDA-Public Use
  Company Number: ES-009507513-1212ESP001408

PATIENT
  Age: 56 Year
  Sex: Male
  Weight: 88 kg

DRUGS (5)
  1. RALTEGRAVIR POTASSIUM [Suspect]
     Indication: HIV INFECTION
     Dosage: 400 mg, bid
     Route: 048
     Dates: start: 200807
  2. LOPINAVIR (+) RITONAVIR [Concomitant]
     Indication: HIV INFECTION
     Dosage: 400/100mg, bid
     Dates: start: 200807
  3. ASPIRIN [Concomitant]
     Indication: PROPHYLAXIS
     Dosage: 100 mg, qd
  4. ESOMEPRAZOLE [Concomitant]
     Indication: ABDOMINAL DISCOMFORT
     Dosage: 40 mg, prn
  5. ENERGISIL VIGOR GINSENG [Interacting]
     Indication: SEXUAL DYSFUNCTION
     Dosage: 1 DF, UNK
     Route: 048

REACTIONS (5)
  - Hepatic enzyme increased [Recovered/Resolved]
  - Weight decreased [None]
  - Transaminases increased [None]
  - Choluria [None]
  - Jaundice [None]
